FAERS Safety Report 17736639 (Version 2)
Quarter: 2020Q2

REPORT INFORMATION
  Report Type: Spontaneous
  Country: US (occurrence: US)
  Receive Date: 20200501
  Receipt Date: 20200508
  Transmission Date: 20200714
  Serious: Yes (Other)
  Sender: FDA-Public Use
  Company Number: US-PFIZER INC-2020173680

PATIENT
  Age: 73 Year
  Sex: Male

DRUGS (2)
  1. PACLITAXEL. [Suspect]
     Active Substance: PACLITAXEL
     Indication: MALIGNANT SWEAT GLAND NEOPLASM
     Dosage: 30 MG/M2, WEEKLY
  2. CARBOPLATIN. [Concomitant]
     Active Substance: CARBOPLATIN
     Indication: MALIGNANT SWEAT GLAND NEOPLASM
     Dosage: UNK, WEEKLY (AREA UNDER THE CURVE 1.5)

REACTIONS (2)
  - Pain [Unknown]
  - Mucosal inflammation [Recovered/Resolved]
